FAERS Safety Report 4482644-4 (Version None)
Quarter: 2004Q3

REPORT INFORMATION
  Report Type: 
  Country: None (occurrence: None)
  Receive Date: 20040921
  Receipt Date: 20040528
  Transmission Date: 20050211
  Serious: Yes (Other)
  Sender: FDA-Public Use
  Company Number: 163-20785-04060383

PATIENT
  Age: 62 Year
  Sex: Male

DRUGS (1)
  1. THALOMID [Suspect]
     Indication: MULTIPLE MYELOMA
     Dosage: 100 MG, DAILY, ORAL
     Route: 048
     Dates: start: 20040504, end: 20040501

REACTIONS (5)
  - ANGIONEUROTIC OEDEMA [None]
  - EYE PRURITUS [None]
  - EYE SWELLING [None]
  - SKIN DISORDER [None]
  - SWELLING FACE [None]
